FAERS Safety Report 9343858 (Version 3)
Quarter: 2013Q3

REPORT INFORMATION
  Report Type: Spontaneous
  Country: US (occurrence: US)
  Receive Date: 20130612
  Receipt Date: 20130719
  Transmission Date: 20140515
  Serious: Yes (Other)
  Sender: FDA-Public Use
  Company Number: US-PFIZER INC-2013175704

PATIENT
  Sex: Female

DRUGS (1)
  1. CHANTIX [Suspect]
     Dosage: UNK
     Dates: start: 201002, end: 2010

REACTIONS (3)
  - Depression [Unknown]
  - Skin exfoliation [Unknown]
  - Tremor [Not Recovered/Not Resolved]
